FAERS Safety Report 25592042 (Version 1)
Quarter: 2025Q3

REPORT INFORMATION
  Report Type: Spontaneous
  Country: US (occurrence: US)
  Receive Date: 20250722
  Receipt Date: 20250722
  Transmission Date: 20251021
  Serious: Yes (Death, Life-Threatening, Other)
  Sender: AMGEN
  Company Number: US-AMGEN-USASP2025141923

PATIENT

DRUGS (2)
  1. CARFILZOMIB [Suspect]
     Active Substance: CARFILZOMIB
     Indication: Plasma cell myeloma refractory
     Route: 065
  2. IDECABTAGENE VICLEUCEL [Suspect]
     Active Substance: IDECABTAGENE VICLEUCEL
     Indication: Plasma cell myeloma refractory
     Route: 065

REACTIONS (30)
  - Gastrointestinal neoplasm [Fatal]
  - Multiple organ dysfunction syndrome [Fatal]
  - Plasma cell myeloma [Fatal]
  - Cytokine release syndrome [Fatal]
  - Cardiac failure [Fatal]
  - Respiratory failure [Fatal]
  - Renal failure [Fatal]
  - Immune effector cell-associated neurotoxicity syndrome [Fatal]
  - Acute myeloid leukaemia [Fatal]
  - Myelodysplastic syndrome [Fatal]
  - Haemorrhage intracranial [Fatal]
  - Tumour lysis syndrome [Fatal]
  - Transfusion-related circulatory overload [Fatal]
  - Infection [Fatal]
  - COVID-19 [Fatal]
  - Death [Fatal]
  - Acute leukaemia [Unknown]
  - Cytopenia [Unknown]
  - Neutropenia [Unknown]
  - Thrombocytopenia [Unknown]
  - Skin cancer [Unknown]
  - Therapy partial responder [Unknown]
  - Facial spasm [Unknown]
  - Nystagmus [Unknown]
  - Diplopia [Unknown]
  - Ataxia [Unknown]
  - Dysphemia [Unknown]
  - Bacterial infection [Unknown]
  - Viral infection [Unknown]
  - Fungal infection [Unknown]
